FAERS Safety Report 17027582 (Version 4)
Quarter: 2020Q4

REPORT INFORMATION
  Report Type: Spontaneous
  Country: US (occurrence: US)
  Receive Date: 20191113
  Receipt Date: 20201009
  Transmission Date: 20210113
  Serious: No
  Sender: FDA-Public Use
  Company Number: US-PFIZER INC-2019489989

PATIENT
  Age: 31 Year
  Sex: Female

DRUGS (2)
  1. METHOTREXATE SODIUM. [Suspect]
     Active Substance: METHOTREXATE SODIUM
     Dosage: UNK
     Dates: start: 201509, end: 201510
  2. ENBREL [Suspect]
     Active Substance: ETANERCEPT
     Dosage: UNK
     Dates: end: 201911

REACTIONS (1)
  - Drug ineffective [Unknown]
